FAERS Safety Report 25118432 (Version 3)
Quarter: 2025Q2

REPORT INFORMATION
  Report Type: Spontaneous
  Country: GB (occurrence: None)
  Receive Date: 20250325
  Receipt Date: 20250429
  Transmission Date: 20250717
  Serious: Yes (Other)
  Sender: INCYTE
  Company Number: GB-INCYTE CORPORATION-2024IN000974

PATIENT
  Age: 51 Year
  Weight: 61.2 kg

DRUGS (10)
  1. PEMAZYRE [Suspect]
     Active Substance: PEMIGATINIB
     Indication: Adenocarcinoma of salivary gland
     Dosage: 13.5 MILLIGRAM, QD (FOR 2 WEEKS THEN 1 WEEK BREAK)
  2. PEMAZYRE [Suspect]
     Active Substance: PEMIGATINIB
     Dosage: 13.5 MILLIGRAM, QD (FOR 2 WEEKS THEN 1 WEEK BREAK)
  3. PEMAZYRE [Suspect]
     Active Substance: PEMIGATINIB
     Dosage: 13.5 MILLIGRAM, QD (FOR 2 WEEKS THEN 1 WEEK BREAK)
  4. PEMAZYRE [Suspect]
     Active Substance: PEMIGATINIB
     Dosage: 9 MILLIGRAM, QD
     Route: 065
  5. PEMAZYRE [Suspect]
     Active Substance: PEMIGATINIB
     Dosage: 9 MILLIGRAM, QD (FOR 2 WEEKS THEN 1 WEEK BREAK)
  6. PEMAZYRE [Suspect]
     Active Substance: PEMIGATINIB
     Dosage: 9 MILLIGRAM, QD (FOR 2 WEEKS THEN 1 WEEK BREAK)
  7. SUMATRIPTAN [Concomitant]
     Active Substance: SUMATRIPTAN
     Indication: Migraine
  8. MORPHINE SULFATE [Concomitant]
     Active Substance: MORPHINE SULFATE
     Indication: Pain
     Dosage: 60 MILLIGRAM, BID
     Route: 065
  9. FAMOTIDINE [Concomitant]
     Active Substance: FAMOTIDINE
     Indication: Dyspepsia
     Dosage: 20 MILLIGRAM, QD
  10. PREGABALIN [Concomitant]
     Active Substance: PREGABALIN
     Indication: Pain
     Dosage: 75 MILLIGRAM, BID

REACTIONS (10)
  - Adenocarcinoma of salivary gland [Unknown]
  - Metastases to liver [Unknown]
  - Metastases to lung [Unknown]
  - Metastases to pleura [Unknown]
  - Disease progression [Unknown]
  - Lethargy [Not Recovered/Not Resolved]
  - Off label use [Unknown]
  - Nail toxicity [Recovered/Resolved]
  - Pain in extremity [Unknown]
  - Arthralgia [Recovered/Resolved]
